FAERS Safety Report 6264395-9 (Version None)
Quarter: 2009Q3

REPORT INFORMATION
  Report Type: 
  Country: None (occurrence: None)
  Receive Date: 20090710
  Receipt Date: 20090703
  Transmission Date: 20100115
  Serious: Yes (Hospitalization)
  Sender: FDA-Public Use
  Company Number: B0582051A

PATIENT
  Sex: Female

DRUGS (2)
  1. AMOXICILLIN TRIHYDRATE [Suspect]
     Indication: URINARY TRACT INFECTION
     Route: 048
     Dates: start: 20090504, end: 20090510
  2. CERAZETTE [Concomitant]
     Indication: ORAL CONTRACEPTION
     Route: 048
     Dates: start: 20090502, end: 20090510

REACTIONS (4)
  - EOSINOPHILIA [None]
  - PRURITUS [None]
  - RASH [None]
  - RASH MACULO-PAPULAR [None]
